FAERS Safety Report 13660277 (Version 4)
Quarter: 2017Q3

REPORT INFORMATION
  Report Type: Spontaneous
  Country: JP (occurrence: JP)
  Receive Date: 20170616
  Receipt Date: 20170921
  Transmission Date: 20171127
  Serious: Yes (Death, Life-Threatening)
  Sender: FDA-Public Use
  Company Number: JP-MITSUBISHI TANABE PHARMA CORPORATION-MTPC2017-0013088

PATIENT
  Age: 64 Year
  Sex: Male

DRUGS (5)
  1. UNASYN [Suspect]
     Active Substance: AMPICILLIN SODIUM\SULBACTAM SODIUM
     Indication: PNEUMONIA
     Route: 041
     Dates: start: 20170421, end: 20170423
  2. DOPAMINE HYDROCHLORIDE. [Concomitant]
     Active Substance: DOPAMINE HYDROCHLORIDE
     Indication: BLOOD PRESSURE DECREASED
     Dosage: 600-1800 MG/DAY
     Route: 041
     Dates: start: 20170422, end: 20170427
  3. RADICUT [Suspect]
     Active Substance: EDARAVONE
     Indication: CEREBRAL INFARCTION
     Route: 041
     Dates: start: 20170421, end: 20170423
  4. GLYCEOL [Concomitant]
     Active Substance: GLYCERIN
     Indication: CEREBRAL INFARCTION
     Route: 041
     Dates: start: 20170421, end: 20170427
  5. SAVIOSOL [Concomitant]
     Indication: CEREBRAL INFARCTION
     Route: 041
     Dates: start: 20170421, end: 20170424

REACTIONS (2)
  - Rhabdomyolysis [Not Recovered/Not Resolved]
  - Cerebral infarction [Fatal]

NARRATIVE: CASE EVENT DATE: 20170423
